FAERS Safety Report 19771795 (Version 1)
Quarter: 2021Q3

REPORT INFORMATION
  Report Type: Other
  Country: US (occurrence: US)
  Receive Date: 20210901
  Receipt Date: 20210901
  Transmission Date: 20211014
  Serious: Yes (Hospitalization)
  Sender: FDA-Public Use
  Company Number: US-ROCHE-2832487

PATIENT
  Age: 76 Year
  Sex: Female
  Weight: 61.29 kg

DRUGS (4)
  1. ACTEMRA [Suspect]
     Active Substance: TOCILIZUMAB
  2. PREDNISONE. [Concomitant]
     Active Substance: PREDNISONE
     Indication: SPONDYLITIS
     Dates: start: 20210406
  3. ACTEMRA [Suspect]
     Active Substance: TOCILIZUMAB
     Indication: SPONDYLITIS
     Dosage: ONGOING? NO
     Route: 058
     Dates: start: 20210429, end: 20210506
  4. ACTEMRA [Suspect]
     Active Substance: TOCILIZUMAB

REACTIONS (5)
  - Feeling abnormal [Not Recovered/Not Resolved]
  - Peripheral swelling [Not Recovered/Not Resolved]
  - Balance disorder [Not Recovered/Not Resolved]
  - Off label use [Unknown]
  - COVID-19 [Unknown]

NARRATIVE: CASE EVENT DATE: 20210510
